FAERS Safety Report 15306363 (Version 10)
Quarter: 2019Q2

REPORT INFORMATION
  Report Type: Report from Study
  Country: US (occurrence: US)
  Receive Date: 20180822
  Receipt Date: 20190502
  Transmission Date: 20190711
  Serious: Yes (Other)
  Sender: FDA-Public Use
  Company Number: US-PFIZER INC-2018319608

PATIENT
  Age: 55 Year
  Sex: Female

DRUGS (1)
  1. IBRANCE [Suspect]
     Active Substance: PALBOCICLIB
     Indication: BREAST CANCER FEMALE
     Dosage: 125 MG, CYCLIC (DAILY, 3 WEEKS ON AND 1 WEEK OFF (21 DAYS ON/7 DAYS OFF)
     Route: 048
     Dates: start: 20180727, end: 20190413

REACTIONS (35)
  - Haemorrhage [Recovered/Resolved]
  - Nausea [Recovered/Resolved]
  - Fatigue [Recovering/Resolving]
  - Stress [Unknown]
  - Dysphonia [Recovered/Resolved]
  - Dyspepsia [Recovered/Resolved]
  - Scratch [Unknown]
  - White blood cell count decreased [Not Recovered/Not Resolved]
  - Dyspnoea [Recovering/Resolving]
  - Stomatitis [Not Recovered/Not Resolved]
  - Dysphagia [Recovering/Resolving]
  - Malaise [Unknown]
  - Urinary tract infection [Recovered/Resolved]
  - Constipation [Recovering/Resolving]
  - Nasal congestion [Recovered/Resolved]
  - Rhinorrhoea [Recovered/Resolved]
  - Pelvic pain [Unknown]
  - Oropharyngeal pain [Recovering/Resolving]
  - Arthralgia [Unknown]
  - Product dose omission [Unknown]
  - Dehydration [Unknown]
  - Back pain [Recovered/Resolved]
  - Cough [Recovering/Resolving]
  - Gastrointestinal pain [Recovered/Resolved]
  - Neutrophil count decreased [Unknown]
  - Dry skin [Not Recovered/Not Resolved]
  - Product dose omission [Unknown]
  - Oral disorder [Recovering/Resolving]
  - Intestinal haemorrhage [Recovered/Resolved]
  - Neoplasm progression [Recovering/Resolving]
  - Oral herpes [Recovered/Resolved]
  - Irritability [Unknown]
  - Epistaxis [Recovering/Resolving]
  - Influenza [Recovering/Resolving]
  - Pain in extremity [Unknown]

NARRATIVE: CASE EVENT DATE: 2018
